FAERS Safety Report 23513324 (Version 2)
Quarter: 2024Q1

REPORT INFORMATION
  Report Type: Other
  Country: GR (occurrence: GR)
  Receive Date: 20240212
  Receipt Date: 20240226
  Transmission Date: 20240409
  Serious: Yes (Hospitalization)
  Sender: FDA-Public Use
  Company Number: GR-BoehringerIngelheim-2024-BI-006495

PATIENT
  Age: 82 Year
  Sex: Male

DRUGS (1)
  1. ALTEPLASE [Suspect]
     Active Substance: ALTEPLASE
     Indication: Cerebral ischaemia
     Route: 042

REACTIONS (5)
  - Haemorrhagic transformation stroke [Unknown]
  - Communication disorder [Unknown]
  - Cerebral haematoma [Unknown]
  - Oedema [Unknown]
  - Cerebral disorder [Unknown]
